FAERS Safety Report 6234860-9 (Version None)
Quarter: 2009Q2

REPORT INFORMATION
  Report Type: 
  Country: None (occurrence: None)
  Receive Date: 20090615
  Receipt Date: 20090512
  Transmission Date: 20091009
  Serious: No
  Sender: FDA-Public Use
  Company Number: DSA_33639_2009

PATIENT
  Sex: Male

DRUGS (10)
  1. XENAZINE [Suspect]
     Indication: DYSKINESIA
     Dosage: 25 MG TID
     Dates: start: 20090224
  2. RITALIN [Concomitant]
  3. INSULIN [Concomitant]
  4. TRICOR [Concomitant]
  5. PRAVACHOL [Concomitant]
  6. ASPIRIN [Concomitant]
  7. NEURONTIN [Concomitant]
  8. M.V.I. [Concomitant]
  9. IRON [Concomitant]
  10. VITAMIN D [Concomitant]

REACTIONS (2)
  - MUSCULOSKELETAL STIFFNESS [None]
  - SOMNOLENCE [None]
